FAERS Safety Report 7827208 (Version 3)
Quarter: 2017Q4

REPORT INFORMATION
  Report Type: Spontaneous
  Country: JP (occurrence: JP)
  Receive Date: 20110225
  Receipt Date: 20171127
  Transmission Date: 20180321
  Serious: Yes (Other)
  Sender: FDA-Public Use
  Company Number: JP-PFIZER INC-2010165305

PATIENT
  Age: 5 Year
  Sex: Female
  Weight: 11 kg

DRUGS (14)
  1. ARTIST [Concomitant]
     Active Substance: CARVEDILOL
     Indication: CARDIAC FAILURE
     Dosage: 0.8 MG, 2X/DAY
     Route: 048
  2. REVATIO [Suspect]
     Active Substance: SILDENAFIL CITRATE
     Dosage: 2 MG, 2X/DAY
     Route: 048
     Dates: start: 20100831, end: 20100920
  3. DIOVAN [Concomitant]
     Active Substance: VALSARTAN
     Indication: CARDIAC FAILURE
     Dosage: 8 MG, 1X/DAY
     Route: 048
  4. PROCYLIN [Concomitant]
     Active Substance: BERAPROST SODIUM
     Indication: CARDIAC FAILURE
     Dosage: 5 UG, 2X/DAY
     Route: 048
  5. ASPIRIN ^BAYER^ [Concomitant]
     Active Substance: ASPIRIN
     Indication: CARDIAC FAILURE
     Dosage: 15 MG, 2X/DAY
     Route: 048
  6. REVATIO [Suspect]
     Active Substance: SILDENAFIL CITRATE
     Indication: PULMONARY HYPERTENSION
     Dosage: 0.5 MG, 2X/DAY
     Route: 048
     Dates: start: 20100803, end: 20100809
  7. REVATIO [Suspect]
     Active Substance: SILDENAFIL CITRATE
     Dosage: 8 MG, 2X/DAY
     Route: 048
     Dates: start: 20101116, end: 20101204
  8. RENIVACE [Concomitant]
     Active Substance: ENALAPRIL
     Indication: CARDIAC FAILURE
     Dosage: 0.35 MG, 2X/DAY
     Route: 048
  9. DIGOSIN [Concomitant]
     Active Substance: DIGOXIN
     Indication: CARDIAC FAILURE
     Dosage: 0.03 MG, 2X/DAY
     Route: 048
  10. REVATIO [Suspect]
     Active Substance: SILDENAFIL CITRATE
     Dosage: 4 MG, 2X/DAY
     Route: 048
     Dates: start: 20100921, end: 20101018
  11. REVATIO [Suspect]
     Active Substance: SILDENAFIL CITRATE
     Indication: CARDIAC FAILURE
     Dosage: 1 MG, 2X/DAY
     Route: 048
     Dates: start: 20100810, end: 20100830
  12. REVATIO [Suspect]
     Active Substance: SILDENAFIL CITRATE
     Dosage: 6 MG, 2X/DAY
     Route: 048
     Dates: start: 20101019, end: 20101115
  13. LASIX [Concomitant]
     Active Substance: FUROSEMIDE
     Indication: CARDIAC FAILURE
     Dosage: 10 MG, 2X/DAY
     Route: 048
  14. ALDACTONE-A [Concomitant]
     Active Substance: SPIRONOLACTONE
     Indication: CARDIAC FAILURE
     Dosage: 10 MG, 2X/DAY
     Route: 048

REACTIONS (3)
  - Arthritis [Recovering/Resolving]
  - Gait disturbance [Recovering/Resolving]
  - Joint swelling [Recovering/Resolving]

NARRATIVE: CASE EVENT DATE: 2010
